FAERS Safety Report 7050208-4 (Version None)
Quarter: 2010Q4

REPORT INFORMATION
  Report Type: 
  Country: None (occurrence: None)
  Receive Date: 20101013
  Receipt Date: 20100928
  Transmission Date: 20110411
  Serious: Yes (Other)
  Sender: FDA-Public Use
  Company Number: 2010AP002098

PATIENT
  Age: 41 Year
  Sex: Female

DRUGS (6)
  1. MYCOPHENOLATE MOFETIL [Suspect]
     Indication: POLYCHONDRITIS
     Dosage: 500 MG;BID;PO
     Route: 048
  2. AZATHIOPRINE [Concomitant]
  3. AZITHROMYCIN [Concomitant]
  4. PREDNISOLONE [Concomitant]
  5. RAMIPRIL [Concomitant]
  6. CYCLOPHOSPHAMIDE [Concomitant]

REACTIONS (2)
  - DEAFNESS [None]
  - TINNITUS [None]
